FAERS Safety Report 6828602-3 (Version None)
Quarter: 2010Q3

REPORT INFORMATION
  Report Type: 
  Country: None (occurrence: None)
  Receive Date: 20100709
  Receipt Date: 20100628
  Transmission Date: 20110219
  Serious: Yes (Hospitalization)
  Sender: FDA-Public Use
  Company Number: FR-GENENTECH-303724

PATIENT
  Sex: Female

DRUGS (7)
  1. MABTHERA [Suspect]
     Indication: NON-HODGKIN'S LYMPHOMA
     Dosage: 750 MG, UNK
     Route: 042
     Dates: start: 20100510, end: 20100510
  2. DEPOCYT [Suspect]
     Indication: NON-HODGKIN'S LYMPHOMA RECURRENT
     Dosage: 50 MG, UNK
     Route: 037
     Dates: start: 20100511, end: 20100511
  3. METHOTREXATE [Suspect]
     Indication: NON-HODGKIN'S LYMPHOMA RECURRENT
     Dosage: 15 MG, UNK
     Route: 050
     Dates: start: 20100510, end: 20100510
  4. METHOTREXATE [Suspect]
     Dosage: ROUTE: INTRAVENOUS
     Route: 050
     Dates: start: 20100511, end: 20100511
  5. HOLOXAN [Suspect]
     Indication: NON-HODGKIN'S LYMPHOMA RECURRENT
     Dosage: 3 G, UNK
     Route: 042
     Dates: start: 20100510, end: 20100512
  6. NOVANTRONE [Suspect]
     Indication: NON-HODGKIN'S LYMPHOMA RECURRENT
     Dosage: 20 MG, UNK
     Route: 042
     Dates: start: 20100510, end: 20100511
  7. ETOPOSIDE [Suspect]
     Indication: NON-HODGKIN'S LYMPHOMA RECURRENT
     Dosage: 300 MG, UNK
     Route: 042
     Dates: start: 20100510, end: 20100511

REACTIONS (5)
  - CONFUSIONAL STATE [None]
  - DYSSTASIA [None]
  - ENCEPHALOPATHY [None]
  - MENTAL IMPAIRMENT [None]
  - URINARY INCONTINENCE [None]
